FAERS Safety Report 19221411 (Version 4)
Quarter: 2021Q3

REPORT INFORMATION
  Report Type: Report from Study
  Country: BE (occurrence: BE)
  Receive Date: 20210505
  Receipt Date: 20210802
  Transmission Date: 20211014
  Serious: Yes (Hospitalization)
  Sender: FDA-Public Use
  Company Number: BE-PFIZER INC-2021501765

PATIENT
  Age: 67 Year
  Sex: Male
  Weight: 87 kg

DRUGS (10)
  1. CISPLATIN. [Suspect]
     Active Substance: CISPLATIN
     Indication: BLADDER TRANSITIONAL CELL CARCINOMA
     Dosage: 102 MG, CYCLIC (ONCE IN 2 WEEKS)
     Route: 042
     Dates: start: 20210324
  2. DOXORUBICIN HCL [Suspect]
     Active Substance: DOXORUBICIN HYDROCHLORIDE
     Dosage: 61 MG, CYCLIC (ONCE IN 2 WEEKS)
     Route: 042
     Dates: start: 20210407
  3. MSB0010718C [Suspect]
     Active Substance: AVELUMAB
     Dosage: 870 MG, CYCLIC (ONCE IN 2 WEEKS)
     Route: 042
     Dates: start: 20210407
  4. VINBLASTINE [Suspect]
     Active Substance: VINBLASTINE
     Dosage: 6 MG, CYCLIC (ONCE IN 2 WEEKS)
     Route: 042
     Dates: start: 20210407
  5. METHOTREXATE SODIUM. [Suspect]
     Active Substance: METHOTREXATE SODIUM
     Indication: BLADDER TRANSITIONAL CELL CARCINOMA
     Dosage: 61 MG, CYCLIC (ONCE IN 2 WEEKS)
     Route: 042
     Dates: start: 20210323
  6. CISPLATIN. [Suspect]
     Active Substance: CISPLATIN
     Dosage: 102 MG, CYCLIC (ONCE IN 2 WEEKS)
     Route: 042
     Dates: start: 20210407
  7. MSB0010718C [Suspect]
     Active Substance: AVELUMAB
     Indication: BLADDER TRANSITIONAL CELL CARCINOMA
     Dosage: 870 MG, CYCLIC (ONCE IN 2 WEEKS)
     Route: 042
     Dates: start: 20210324
  8. METHOTREXATE SODIUM. [Suspect]
     Active Substance: METHOTREXATE SODIUM
     Dosage: 61 MG, CYCLIC (ONCE IN 2 WEEKS)
     Route: 042
     Dates: start: 20210406
  9. DOXORUBICIN HCL [Suspect]
     Active Substance: DOXORUBICIN HYDROCHLORIDE
     Indication: BLADDER TRANSITIONAL CELL CARCINOMA
     Dosage: 61 MG, CYCLIC (ONCE IN 2 WEEKS)
     Route: 042
     Dates: start: 20210324
  10. VINBLASTINE [Suspect]
     Active Substance: VINBLASTINE
     Indication: BLADDER TRANSITIONAL CELL CARCINOMA
     Dosage: 6 MG, CYCLIC (ONCE IN 2 WEEKS)
     Route: 042
     Dates: start: 20210324

REACTIONS (1)
  - COVID-19 [Recovered/Resolved]

NARRATIVE: CASE EVENT DATE: 20210419
